FAERS Safety Report 4659220-3 (Version None)
Quarter: 2005Q2

REPORT INFORMATION
  Report Type: 
  Country: None (occurrence: None)
  Receive Date: 20050511
  Receipt Date: 20050428
  Transmission Date: 20051028
  Serious: Yes (Other)
  Sender: FDA-Public Use
  Company Number: 2005AP02539

PATIENT
  Sex: Male

DRUGS (4)
  1. SEROQUEL [Suspect]
     Indication: SCHIZOPHRENIA
     Route: 048
     Dates: end: 20050415
  2. SEROQUEL [Suspect]
     Dosage: PATIENT PROBABLY TOOK A MONTH'S SUPPLY OF QUETIAPINE
     Route: 048
     Dates: start: 20050415, end: 20050415
  3. RISPERDAL [Suspect]
     Route: 048
     Dates: end: 20050415
  4. RISPERDAL [Suspect]
     Dosage: PATIENT PROBABLY TOOK A MONTH'S SUPPLY OF RISPERIDONE
     Route: 048
     Dates: end: 20050415

REACTIONS (3)
  - HALLUCINATION [None]
  - MULTIPLE DRUG OVERDOSE [None]
  - SUICIDE ATTEMPT [None]
